FAERS Safety Report 7860584-8 (Version None)
Quarter: 2011Q4

REPORT INFORMATION
  Report Type: 
  Country: None (occurrence: None)
  Receive Date: 20111026
  Receipt Date: 20111012
  Transmission Date: 20120403
  Serious: Yes (Hospitalization, Disabling, Other)
  Sender: FDA-Public Use
  Company Number: 2011MA002465

PATIENT
  Age: 69 Year
  Sex: Female
  Weight: 68.0396 kg

DRUGS (58)
  1. CLINDAMYCIN [Concomitant]
  2. CLONIDINE [Concomitant]
  3. METOPROLOL TARTRATE [Concomitant]
  4. NAPROXEN [Concomitant]
  5. PHENERGAN HCL [Concomitant]
  6. PROPOXYPHENE HCL AND ACETAMINOPHEN [Concomitant]
  7. ULTRAM [Concomitant]
  8. VITAMIN E [Concomitant]
  9. ZITHROMAX [Concomitant]
  10. ZYRTEC [Concomitant]
  11. LASIX [Concomitant]
  12. ZOFRAN [Concomitant]
  13. ALENDRONATE SODIUM [Concomitant]
  14. IPRATROPIUM BROMIDE [Concomitant]
  15. NEXIUM [Concomitant]
  16. NITROFURANTOIN [Concomitant]
  17. SUCRALFATE [Concomitant]
  18. VITAMIN D [Concomitant]
  19. BACTRIM [Concomitant]
  20. FIORINAL [Concomitant]
  21. HYDROCHLOROTHIAZIDE [Concomitant]
  22. PHENAZOPYRIDINE HCL TAB [Concomitant]
  23. SULINDAC [Concomitant]
  24. XENAZINE [Concomitant]
  25. METOCLOPRAMIDE [Suspect]
     Indication: BARRETT'S OESOPHAGUS
     Dosage: 10 MG; TID; PO
     Route: 048
     Dates: start: 20071019, end: 20090831
  26. METOCLOPRAMIDE [Suspect]
     Indication: GASTROOESOPHAGEAL REFLUX DISEASE
     Dosage: 10 MG; TID; PO
     Route: 048
     Dates: start: 20071019, end: 20090831
  27. METOCLOPRAMIDE [Suspect]
     Indication: DYSPEPSIA
     Dosage: 10 MG; TID; PO
     Route: 048
     Dates: start: 20071019, end: 20090831
  28. CELEBREX [Concomitant]
  29. MAXALT [Concomitant]
  30. REQUIP [Concomitant]
  31. VAGIFEM [Concomitant]
  32. ASCORBIC ACID [Concomitant]
  33. ZETIA [Concomitant]
  34. BACLOFEN [Concomitant]
  35. CIPRO [Concomitant]
  36. ERYTHROMYCIN [Concomitant]
  37. EVISTA [Concomitant]
  38. FLUOXETINE HCL [Concomitant]
  39. HYDROCODONE BITARTRATE [Concomitant]
  40. OXYCONTIN [Concomitant]
  41. PHENADOZ [Concomitant]
  42. PRIMIDONE [Concomitant]
  43. RETIN-A [Concomitant]
  44. AMOXICILLIN [Concomitant]
  45. DARVOCET-N 50 [Concomitant]
  46. FLEXERIL [Concomitant]
  47. MELATONIN [Concomitant]
  48. NEURONTIN [Concomitant]
  49. NORTRIPTYLINE HCL [Concomitant]
  50. CHOLESTYRAMINE [Concomitant]
  51. FENTANYL [Concomitant]
  52. HYDROXYZINE [Concomitant]
  53. KLONOPIN [Concomitant]
  54. LACTULOSE [Concomitant]
  55. OXYCODONE HCL [Concomitant]
  56. PREDNISONE [Concomitant]
  57. STEROID INJECTIONS [Concomitant]
  58. ZOLPIDEM [Concomitant]

REACTIONS (43)
  - EXTRAPYRAMIDAL DISORDER [None]
  - HYPERHIDROSIS [None]
  - CHEST PAIN [None]
  - INTENTION TREMOR [None]
  - INSOMNIA [None]
  - INTERVERTEBRAL DISC PROTRUSION [None]
  - ELECTROCARDIOGRAM ST SEGMENT ABNORMAL [None]
  - NERVE ROOT COMPRESSION [None]
  - VERTEBRAL FORAMINAL STENOSIS [None]
  - ECONOMIC PROBLEM [None]
  - DYSPEPSIA [None]
  - CONSTIPATION [None]
  - ASTHENIA [None]
  - DYSTONIA [None]
  - EMOTIONAL DISORDER [None]
  - SYNCOPE [None]
  - POLLAKIURIA [None]
  - OEDEMA PERIPHERAL [None]
  - VOMITING [None]
  - CYSTOCELE [None]
  - ABDOMINAL PAIN UPPER [None]
  - GASTROINTESTINAL HYPOMOTILITY [None]
  - SENSATION OF PRESSURE [None]
  - MUSCLE SPASMS [None]
  - MYOCARDIAL INFARCTION [None]
  - INJURY [None]
  - OESOPHAGEAL PAIN [None]
  - GASTRIC DISORDER [None]
  - MICTURITION URGENCY [None]
  - ABDOMINAL PAIN [None]
  - TREMOR [None]
  - TENSION HEADACHE [None]
  - URINARY TRACT INFECTION [None]
  - NEURALGIA [None]
  - GASTRITIS [None]
  - TARDIVE DYSKINESIA [None]
  - ARTHRALGIA [None]
  - BACK PAIN [None]
  - RESTLESS LEGS SYNDROME [None]
  - VAGINAL PROLAPSE [None]
  - URINARY INCONTINENCE [None]
  - ABDOMINAL DISTENSION [None]
  - HEADACHE [None]
